FAERS Safety Report 6883580-6 (Version None)
Quarter: 2010Q3

REPORT INFORMATION
  Report Type: 
  Country: None (occurrence: None)
  Receive Date: 20100727
  Receipt Date: 20100716
  Transmission Date: 20110219
  Serious: Yes (Hospitalization)
  Sender: FDA-Public Use
  Company Number: ACO_01440_2010

PATIENT
  Sex: Male
  Weight: 72.5755 kg

DRUGS (12)
  1. AMPYRA [Suspect]
     Indication: HYPERTENSION
     Dosage: 10 MG QD ORAL, 10 MG QD ORAL
     Route: 048
     Dates: start: 20100516, end: 20100701
  2. AMPYRA [Suspect]
     Indication: HYPERTENSION
     Dosage: 10 MG QD ORAL, 10 MG QD ORAL
     Route: 048
     Dates: start: 20100701
  3. CARDIZEM [Suspect]
     Indication: HYPERTENSION
     Dosage: DF ORAL
     Route: 048
     Dates: start: 20100101
  4. LISINOPRIL [Concomitant]
  5. NEURONTIN [Concomitant]
  6. AMBIEN [Concomitant]
  7. ROPINIROLE [Concomitant]
  8. DIAZEPAM [Concomitant]
  9. ASPIRIN [Concomitant]
  10. PROVIGIL [Concomitant]
  11. MONOCYCLIN [Concomitant]
  12. BACLOFEN [Concomitant]

REACTIONS (5)
  - BURNING SENSATION [None]
  - CONDITION AGGRAVATED [None]
  - HEART RATE DECREASED [None]
  - MULTIPLE SCLEROSIS [None]
  - THERAPEUTIC RESPONSE UNEXPECTED [None]
